FAERS Safety Report 6458947-0 (Version None)
Quarter: 2009Q4

REPORT INFORMATION
  Report Type: 
  Country: None (occurrence: None)
  Receive Date: 20091125
  Receipt Date: 20091125
  Transmission Date: 20100525
  Serious: Yes (Disabling)
  Sender: FDA-Public Use
  Company Number: None

PATIENT
  Sex: Male
  Weight: 90.7194 kg

DRUGS (1)
  1. FLAGYL [Suspect]
     Indication: GASTRIC INFECTION
     Dosage: 1 TWICE DAY
     Dates: start: 20080601, end: 20081001

REACTIONS (1)
  - NERVE INJURY [None]
